FAERS Safety Report 5956779-0 (Version None)
Quarter: 2008Q4

REPORT INFORMATION
  Report Type: 
  Country: None (occurrence: None)
  Receive Date: 20081118
  Receipt Date: 20081113
  Transmission Date: 20090506
  Serious: Yes (Other)
  Sender: FDA-Public Use
  Company Number: GB-ASTRAZENECA-2008GB02143

PATIENT
  Age: 51 Year
  Sex: Female
  Weight: 75 kg

DRUGS (4)
  1. SYMBICORT [Suspect]
     Indication: ASTHMA
     Route: 055
     Dates: start: 20081018, end: 20081019
  2. MEFENAMIC ACID [Concomitant]
     Indication: ARTHRITIS
     Route: 048
     Dates: start: 20081017
  3. SERETIDE [Concomitant]
     Indication: ASTHMA
     Route: 055
     Dates: start: 20080221, end: 20080926
  4. VENTOLIN [Concomitant]
     Indication: ASTHMA
     Route: 048
     Dates: start: 20080221, end: 20080926

REACTIONS (1)
  - ANAPHYLACTIC REACTION [None]
